FAERS Safety Report 5127505-2 (Version None)
Quarter: 2006Q4

REPORT INFORMATION
  Report Type: 
  Country: None (occurrence: None)
  Receive Date: 20061011
  Receipt Date: 20060925
  Transmission Date: 20070319
  Serious: Yes (Death, Other)
  Sender: FDA-Public Use
  Company Number: 2006JP003507

PATIENT
  Sex: Male

DRUGS (6)
  1. PROGRAF [Suspect]
     Indication: LIVER TRANSPLANT
  2. CYCLOPHOSPHAMIDE [Concomitant]
  3. STEROID [Concomitant]
  4. PROSTAGLANDIN E1                          (ALPROSTADIL) INJECTION [Concomitant]
  5. FOY          (GABEXATE MESILATE) INJECTION [Concomitant]
  6. RITUXIMAB [Concomitant]

REACTIONS (6)
  - ABDOMINAL PAIN UPPER [None]
  - HEPATIC FAILURE [None]
  - HEPATIC INFARCTION [None]
  - HEPATIC INFECTION [None]
  - HEPATIC NECROSIS [None]
  - PORTAL VEIN THROMBOSIS [None]
